FAERS Safety Report 4953915-X (Version None)
Quarter: 2006Q1

REPORT INFORMATION
  Report Type: 
  Country: None (occurrence: None)
  Receive Date: 20060323
  Receipt Date: 20060323
  Transmission Date: 20060701
  Serious: Yes (Other)
  Sender: FDA-Public Use
  Company Number: None

PATIENT
  Age: 53 Year
  Sex: Female
  Weight: 105 kg

DRUGS (2)
  1. LYRICA [Suspect]
     Indication: NEUROPATHY
     Dosage: 100 MG DAILY PO
     Route: 048
     Dates: start: 20050701
  2. PROCHLORPERAZINE 10 MG/2ML BAXTER [Suspect]
     Indication: NAUSEA
     Dosage: 10 MG X 1 IV
     Route: 042
     Dates: start: 20060313

REACTIONS (6)
  - CELLULITIS [None]
  - DRUG TOXICITY [None]
  - LETHARGY [None]
  - MUSCLE TWITCHING [None]
  - OEDEMA PERIPHERAL [None]
  - PUPILLARY DISORDER [None]
